FAERS Safety Report 12705447 (Version 1)
Quarter: 2016Q3

REPORT INFORMATION
  Report Type: Spontaneous
  Country: US (occurrence: US)
  Receive Date: 20160901
  Receipt Date: 20160901
  Transmission Date: 20161109
  Serious: No
  Sender: FDA-Public Use
  Company Number: US-ASTRAZENECA-2016SE76437

PATIENT
  Sex: Female

DRUGS (30)
  1. VENTOLIN [Concomitant]
     Active Substance: ALBUTEROL SULFATE
  2. NORCO [Concomitant]
     Active Substance: ACETAMINOPHEN\HYDROCODONE BITARTRATE
  3. CYMBALTA [Concomitant]
     Active Substance: DULOXETINE HYDROCHLORIDE
  4. SYNTHROID [Concomitant]
     Active Substance: LEVOTHYROXINE SODIUM
  5. ROBAXIN [Concomitant]
     Active Substance: METHOCARBAMOL
  6. COUMADIN [Concomitant]
     Active Substance: WARFARIN SODIUM
  7. SYMBICORT [Suspect]
     Active Substance: BUDESONIDE\FORMOTEROL FUMARATE DIHYDRATE
     Route: 055
  8. ZITHROMAX [Suspect]
     Active Substance: AZITHROMYCIN DIHYDRATE
     Route: 065
  9. EFFEXOR [Suspect]
     Active Substance: VENLAFAXINE HYDROCHLORIDE
     Route: 065
  10. BIOTENE NOS [Concomitant]
     Active Substance: CETYLPYRIDINIUM CHLORIDE OR SODIUM FLUORIDE OR SODIUM MONOFLUOROPHOSPHATE OR GLUCOSE OXIDASE\LACTOFERRIN\LACTOPEROXIDASE BOVINE\LYSOZYME
  11. LOPRESSOR [Concomitant]
     Active Substance: METOPROLOL TARTRATE
  12. DITROPAN XL [Concomitant]
     Active Substance: OXYBUTYNIN CHLORIDE
  13. ULTRAM [Concomitant]
     Active Substance: TRAMADOL HYDROCHLORIDE
  14. CRESTOR [Suspect]
     Active Substance: ROSUVASTATIN CALCIUM
     Route: 048
  15. LYRICA [Suspect]
     Active Substance: PREGABALIN
     Route: 048
  16. SPIRIVA [Suspect]
     Active Substance: TIOTROPIUM BROMIDE MONOHYDRATE
     Route: 065
  17. ALDACTONE [Suspect]
     Active Substance: SPIRONOLACTONE
     Route: 065
  18. ASPIRIN. [Concomitant]
     Active Substance: ASPIRIN
  19. RYTHMOL SR [Concomitant]
     Active Substance: PROPAFENONE HYDROCHLORIDE
  20. REQUIP [Concomitant]
     Active Substance: ROPINIROLE HYDROCHLORIDE
  21. SALINE MIST [Concomitant]
     Active Substance: SODIUM CHLORIDE
  22. KEFLEX [Concomitant]
     Active Substance: CEPHALEXIN
  23. VITAMIN D3 [Concomitant]
     Active Substance: CHOLECALCIFEROL
  24. ZAROXOLYN [Concomitant]
     Active Substance: METOLAZONE
  25. D/LT-XR [Concomitant]
  26. FREESTYLE LANCETS [Concomitant]
  27. DEMADEX [Concomitant]
     Active Substance: TORSEMIDE
  28. PROTONIX [Suspect]
     Active Substance: PANTOPRAZOLE SODIUM
     Route: 065
  29. REMERON [Concomitant]
     Active Substance: MIRTAZAPINE
  30. DELTASONE [Concomitant]
     Active Substance: PREDNISONE

REACTIONS (1)
  - Myalgia [Unknown]
